FAERS Safety Report 14906314 (Version 1)
Quarter: 2018Q2

REPORT INFORMATION
  Report Type: Spontaneous
  Country: US (occurrence: US)
  Receive Date: 20180517
  Receipt Date: 20180517
  Transmission Date: 20180711
  Serious: No
  Sender: FDA-Public Use
  Company Number: US-SA-2018SA087886

PATIENT
  Age: 58 Year
  Sex: Female
  Weight: 62.1 kg

DRUGS (8)
  1. SOLOSTAR [Suspect]
     Active Substance: DEVICE
  2. LANTUS SOLOSTAR [Suspect]
     Active Substance: INSULIN GLARGINE
     Route: 051
  3. TOUJEO [Concomitant]
     Active Substance: INSULIN GLARGINE
     Route: 065
  4. LISINOPRIL. [Concomitant]
     Active Substance: LISINOPRIL
     Dosage: DAILY DOSE: .05
     Route: 065
     Dates: start: 2010
  5. SOLOSTAR [Concomitant]
     Active Substance: DEVICE
     Route: 065
     Dates: end: 2017
  6. LANTUS SOLOSTAR [Suspect]
     Active Substance: INSULIN GLARGINE
     Dosage: 7F4653A 4/2020
     Route: 051
  7. TOUJEO [Concomitant]
     Active Substance: INSULIN GLARGINE
     Route: 065
     Dates: end: 2017
  8. SOLOSTAR [Suspect]
     Active Substance: DEVICE

REACTIONS (3)
  - Agitation [Not Recovered/Not Resolved]
  - Blood glucose increased [Not Recovered/Not Resolved]
  - Anxiety [Not Recovered/Not Resolved]
